FAERS Safety Report 6299966-7 (Version None)
Quarter: 2009Q3

REPORT INFORMATION
  Report Type: 
  Country: None (occurrence: None)
  Receive Date: 20090803
  Receipt Date: 20090724
  Transmission Date: 20100115
  Serious: Yes (Hospitalization)
  Sender: FDA-Public Use
  Company Number: KV200801309

PATIENT
  Age: 36 Year
  Sex: Male
  Weight: 108 kg

DRUGS (2)
  1. MORPHINE SULFATE [Suspect]
     Indication: PAIN
     Dosage: 60 MG, BID, ORAL
     Route: 048
     Dates: start: 20080125
  2. PROZAC [Concomitant]

REACTIONS (14)
  - ABDOMINAL PAIN [None]
  - ASTHENIA [None]
  - FEELING DRUNK [None]
  - HAEMATURIA [None]
  - HYPOTENSION [None]
  - LISTLESS [None]
  - MENTAL STATUS CHANGES [None]
  - MOOD ALTERED [None]
  - NAUSEA [None]
  - PERSONALITY CHANGE [None]
  - PRODUCT QUALITY ISSUE [None]
  - PULSE ABNORMAL [None]
  - SUICIDAL IDEATION [None]
  - VOMITING [None]
